FAERS Safety Report 5700002-9 (Version None)
Quarter: 2008Q2

REPORT INFORMATION
  Report Type: 
  Country: None (occurrence: None)
  Receive Date: 20080410
  Receipt Date: 20080331
  Transmission Date: 20081010
  Serious: Yes (Hospitalization, Other)
  Sender: FDA-Public Use
  Company Number: FR-ASTRAZENECA-2008CG00283

PATIENT
  Age: 708 Month
  Sex: Female
  Weight: 65 kg

DRUGS (2)
  1. NOLVADEX [Suspect]
     Indication: BREAST CANCER FEMALE
     Route: 048
     Dates: start: 20030901, end: 20080101
  2. CALCIUM VITAMIN D3 [Concomitant]

REACTIONS (1)
  - RETINAL DETACHMENT [None]
